FAERS Safety Report 15918915 (Version 1)
Quarter: 2019Q1

REPORT INFORMATION
  Report Type: Spontaneous
  Country: PL (occurrence: PL)
  Receive Date: 20190205
  Receipt Date: 20190205
  Transmission Date: 20190417
  Serious: Yes (Other)
  Sender: FDA-Public Use
  Company Number: PL-MYLANLABS-2019M1008822

PATIENT
  Age: 68 Year
  Sex: Male

DRUGS (6)
  1. INSULIN INJECTION [Suspect]
     Active Substance: INSULIN NOS
     Dosage: SHORT-ACTING INSULIN (30 UNITS BEFORE SLEEP, 26 UNITS BEFORE DINNER AND 14 UNITS BEFORE SUPPER
  2. GLIMEPIRIDE. [Suspect]
     Active Substance: GLIMEPIRIDE
     Indication: PRODUCT USED FOR UNKNOWN INDICATION
     Dosage: 6 MG, ONCE DAILY, IN THE MORNING
  3. METFORMIN [Suspect]
     Active Substance: METFORMIN HYDROCHLORIDE
     Indication: PRODUCT USED FOR UNKNOWN INDICATION
     Dosage: 1000 MG THREE TIMES DAILY
  4. INSULIN INJECTION [Suspect]
     Active Substance: INSULIN NOS
     Dosage: INTERMEDIATE-ACTING INSULIN (32 UNITS BEFORE SLEEP)
  5. INSULIN INJECTION [Suspect]
     Active Substance: INSULIN NOS
     Indication: PRODUCT USED FOR UNKNOWN INDICATION
     Dosage: INSULIN ASPART (22 UNITS AFTER BREAKFAST, 12 UNITS AFTER DINNER AND 24 UNITS AFTER SUPPER)
  6. INSULIN INJECTION [Suspect]
     Active Substance: INSULIN NOS
     Dosage: INTERMEDIATE-ACTING INSULIN (22 UNITS IN THE MORNING AND 28 UNITS BEFORE SLEEP)UNK

REACTIONS (3)
  - Disease progression [Unknown]
  - Hypoglycaemia [Unknown]
  - Drug effect incomplete [Unknown]
